FAERS Safety Report 7399816-1 (Version None)
Quarter: 2011Q2

REPORT INFORMATION
  Report Type: 
  Country: None (occurrence: None)
  Receive Date: 20110407
  Receipt Date: 20110323
  Transmission Date: 20111010
  Serious: No
  Sender: FDA-Public Use
  Company Number: US-JNJFOC-20110311841

PATIENT
  Sex: Female
  Weight: 70.31 kg

DRUGS (10)
  1. FENTANYL-100 [Suspect]
     Route: 062
  2. HYDROCHLOROTHIAZIDE [Concomitant]
     Indication: BLOOD PRESSURE
     Route: 048
  3. FENTANYL-100 [Suspect]
     Indication: ARTHRITIS
     Route: 062
  4. ASPIRIN [Concomitant]
     Indication: BLOOD PRESSURE
     Route: 048
  5. HYDROCODONE [Concomitant]
     Indication: PAIN
     Dosage: 5/500MG
     Route: 048
  6. NIFEDICAL [Concomitant]
     Indication: BLOOD PRESSURE
     Route: 048
  7. FOLIC ACID [Concomitant]
     Indication: VITAMIN SUPPLEMENTATION
     Route: 048
  8. ATENOLOL [Concomitant]
     Indication: BLOOD PRESSURE
     Route: 048
  9. ENALAPRIL MALEATE [Concomitant]
     Indication: BLOOD PRESSURE
     Route: 048
  10. VITAMIN B-12 [Concomitant]
     Indication: VITAMIN SUPPLEMENTATION
     Route: 048

REACTIONS (4)
  - PRODUCT QUALITY ISSUE [None]
  - DRUG INEFFECTIVE [None]
  - DRUG ADMINISTERED AT INAPPROPRIATE SITE [None]
  - PRODUCT ADHESION ISSUE [None]
